FAERS Safety Report 23672381 (Version 1)
Quarter: 2024Q1

REPORT INFORMATION
  Report Type: Other
  Country: US (occurrence: None)
  Receive Date: 20240326
  Receipt Date: 20240326
  Transmission Date: 20240410
  Serious: Yes (Other)
  Sender: FDA-Public Use
  Company Number: US-ROCHE-3527441

PATIENT
  Age: 71 Year
  Sex: Male

DRUGS (8)
  1. OCREVUS [Suspect]
     Active Substance: OCRELIZUMAB
     Indication: Multiple sclerosis
     Route: 042
  2. OCREVUS [Suspect]
     Active Substance: OCRELIZUMAB
     Indication: Urinary tract infection
  3. OCREVUS [Suspect]
     Active Substance: OCRELIZUMAB
     Indication: Escherichia sepsis
  4. OCREVUS [Suspect]
     Active Substance: OCRELIZUMAB
     Indication: Acute myocardial infarction
  5. OCREVUS [Suspect]
     Active Substance: OCRELIZUMAB
     Indication: Lung disorder
  6. METHYLPREDNISOLONE [Concomitant]
     Active Substance: METHYLPREDNISOLONE
  7. DIPHENHYDRAMINE [Concomitant]
     Active Substance: DIPHENHYDRAMINE
  8. ONDANSETRON [Concomitant]
     Active Substance: ONDANSETRON

REACTIONS (4)
  - Urinary tract infection [Unknown]
  - Sepsis [Unknown]
  - Acute myocardial infarction [Unknown]
  - Lung disorder [Unknown]
